FAERS Safety Report 13852427 (Version 1)
Quarter: 2017Q3

REPORT INFORMATION
  Report Type: Spontaneous
  Country: CA (occurrence: CA)
  Receive Date: 20170810
  Receipt Date: 20170810
  Transmission Date: 20171127
  Serious: Yes (Life-Threatening, Other)
  Sender: FDA-Public Use
  Company Number: CA-FERRINGPH-2017FE03814

PATIENT

DRUGS (3)
  1. SALBUTAMOL [Concomitant]
     Active Substance: ALBUTEROL
     Indication: PRODUCT USED FOR UNKNOWN INDICATION
     Dosage: PUFFER OCCASIONALLY
     Route: 064
  2. MULTIVITAMIN                       /00097801/ [Concomitant]
     Active Substance: VITAMINS
     Indication: PRODUCT USED FOR UNKNOWN INDICATION
     Route: 064
  3. CERVIDIL [Suspect]
     Active Substance: DINOPROSTONE
     Indication: LABOUR INDUCTION
     Dosage: UNK
     Route: 064
     Dates: start: 20170730, end: 20170730

REACTIONS (5)
  - Foetal acidosis [Unknown]
  - Foetal monitoring abnormal [Unknown]
  - Hypoxic-ischaemic encephalopathy [Unknown]
  - Apgar score low [Recovering/Resolving]
  - Convulsion neonatal [Unknown]

NARRATIVE: CASE EVENT DATE: 20170730
